APPROVED DRUG PRODUCT: AMPICILLIN AND SULBACTAM
Active Ingredient: AMPICILLIN SODIUM; SULBACTAM SODIUM
Strength: EQ 10GM BASE/VIAL;EQ 5GM BASE/VIAL
Dosage Form/Route: INJECTABLE;INJECTION
Application: A065240 | Product #001 | TE Code: AP
Applicant: SANDOZ INC
Approved: Jul 25, 2006 | RLD: No | RS: No | Type: RX